FAERS Safety Report 7072912-4 (Version None)
Quarter: 2010Q4

REPORT INFORMATION
  Report Type: 
  Country: None (occurrence: None)
  Receive Date: 20101029
  Receipt Date: 20100322
  Transmission Date: 20110411
  Serious: No
  Sender: FDA-Public Use
  Company Number: A0852409A

PATIENT
  Age: 41 Year
  Sex: Female
  Weight: 66.2 kg

DRUGS (7)
  1. ADVAIR DISKUS 100/50 [Suspect]
     Indication: PRODUCT USED FOR UNKNOWN INDICATION
     Route: 065
     Dates: end: 20100218
  2. SYNTHROID [Concomitant]
  3. SINGULAIR [Concomitant]
  4. VISTARIL [Concomitant]
  5. ELMIRON [Concomitant]
  6. OXYBUTYNIN [Concomitant]
  7. VERAMYST [Concomitant]

REACTIONS (2)
  - ACNE [None]
  - APHONIA [None]
